FAERS Safety Report 24190307 (Version 3)
Quarter: 2025Q2

REPORT INFORMATION
  Report Type: Report from Study
  Country: ZA (occurrence: ZA)
  Receive Date: 20240808
  Receipt Date: 20250604
  Transmission Date: 20250717
  Serious: Yes (Hospitalization)
  Sender: ROCHE
  Company Number: ZA-ROCHE-10000047268

PATIENT
  Age: 2 Year
  Sex: Male
  Weight: 12 kg

DRUGS (3)
  1. HEMLIBRA [Suspect]
     Active Substance: EMICIZUMAB-KXWH
     Indication: Factor VIII deficiency
     Dosage: STRENGTH: 30MG/1ML
     Route: 058
     Dates: start: 202405
  2. HEMLIBRA [Suspect]
     Active Substance: EMICIZUMAB-KXWH
     Indication: Factor VIII deficiency
     Dosage: STRENGTH: 30MG/1ML
     Route: 058
     Dates: start: 202504
  3. HEMLIBRA [Suspect]
     Active Substance: EMICIZUMAB-KXWH
     Dosage: STRENGTH: 60MG/0.4ML
     Route: 058
     Dates: start: 202504

REACTIONS (6)
  - Haemorrhage [Unknown]
  - Fall [Unknown]
  - Contusion [Unknown]
  - Haemorrhage [Unknown]
  - Haemarthrosis [Unknown]
  - Dental caries [Unknown]

NARRATIVE: CASE EVENT DATE: 20240701
